FAERS Safety Report 8560127-X (Version None)
Quarter: 2012Q3

REPORT INFORMATION
  Report Type: 
  Country: None (occurrence: None)
  Receive Date: 20120802
  Receipt Date: 20120725
  Transmission Date: 20120928
  Serious: Yes (Hospitalization, Other)
  Sender: FDA-Public Use
  Company Number: US-ABBOTT-12P-163-0960000-00

PATIENT
  Sex: Female
  Weight: 61.29 kg

DRUGS (3)
  1. HUMIRA [Suspect]
     Route: 058
     Dates: end: 20120327
  2. HUMIRA [Suspect]
     Indication: PSORIASIS
     Dosage: INITIAL DOSE OF 80MG
     Route: 058
     Dates: start: 20111216, end: 20111216
  3. ORAL CONTRACEPTION [Concomitant]
     Indication: CONTRACEPTION

REACTIONS (9)
  - EXERCISE TOLERANCE DECREASED [None]
  - SEPSIS [None]
  - PYREXIA [None]
  - LETHARGY [None]
  - TOXIC SHOCK SYNDROME [None]
  - EJECTION FRACTION ABNORMAL [None]
  - RENAL FAILURE [None]
  - CARDIAC FAILURE CONGESTIVE [None]
  - ALOPECIA [None]
